FAERS Safety Report 4370468-8 (Version None)
Quarter: 2004Q2

REPORT INFORMATION
  Report Type: 
  Country: None (occurrence: None)
  Receive Date: 20040603
  Receipt Date: 20040204
  Transmission Date: 20050107
  Serious: No
  Sender: FDA-Public Use
  Company Number: US-BRISTOL-MYERS SQUIBB COMPANY-12495321

PATIENT
  Age: 39 Year
  Sex: Male

DRUGS (2)
  1. ABILIFY [Suspect]
  2. RISPERDAL [Concomitant]

REACTIONS (1)
  - HEPATIC ENZYME INCREASED [None]
